FAERS Safety Report 24886975 (Version 1)
Quarter: 2025Q1

REPORT INFORMATION
  Report Type: Report from Study
  Country: US (occurrence: US)
  Receive Date: 20250127
  Receipt Date: 20250127
  Transmission Date: 20250409
  Serious: Yes (Other)
  Sender: ABBVIE
  Company Number: US-ABBVIE-5947019

PATIENT
  Age: 73 Year
  Sex: Male

DRUGS (1)
  1. SKYRIZI [Suspect]
     Active Substance: RISANKIZUMAB-RZAA
     Indication: Psoriasis
     Route: 058
     Dates: start: 20230314

REACTIONS (6)
  - Foreign body [Recovered/Resolved]
  - Spinal pain [Unknown]
  - Back injury [Not Recovered/Not Resolved]
  - Dyspnoea [Not Recovered/Not Resolved]
  - Skin atrophy [Unknown]
  - Scar [Unknown]

NARRATIVE: CASE EVENT DATE: 20240901
